FAERS Safety Report 7317194-0 (Version None)
Quarter: 2011Q1

REPORT INFORMATION
  Report Type: 
  Country: None (occurrence: None)
  Receive Date: 20110226
  Receipt Date: 20101004
  Transmission Date: 20110831
  Serious: No
  Sender: FDA-Public Use
  Company Number: US-ALLERGAN-1012901US

PATIENT

DRUGS (1)
  1. BOTOX COSMETIC [Suspect]
     Indication: SKIN WRINKLING

REACTIONS (4)
  - INJECTION SITE SWELLING [None]
  - INJECTION SITE HAEMATOMA [None]
  - DRUG INEFFECTIVE [None]
  - INJECTION SITE PAIN [None]
